FAERS Safety Report 6117012-2 (Version None)
Quarter: 2009Q1

REPORT INFORMATION
  Report Type: 
  Country: None (occurrence: None)
  Receive Date: 20090314
  Receipt Date: 20090105
  Transmission Date: 20090719
  Serious: No
  Sender: FDA-Public Use
  Company Number: US-ABBOTT-09P-163-0495951-00

PATIENT
  Sex: Female
  Weight: 70.824 kg

DRUGS (28)
  1. HUMIRA [Suspect]
     Indication: CROHN'S DISEASE
     Route: 058
     Dates: start: 20080101
  2. JANUVIA [Concomitant]
     Indication: TYPE 2 DIABETES MELLITUS
  3. PHENERGAN [Concomitant]
     Indication: NAUSEA
     Dosage: EVERY 4 TO 6 HOURS
  4. PENTASA [Concomitant]
     Indication: CROHN'S DISEASE
     Dosage: 25MG/16 PILLS DAILY
  5. ASPIRIN [Concomitant]
     Indication: CORONARY ARTERY DISEASE
  6. MIRTAZAPINE [Concomitant]
     Indication: DRUG USE FOR UNKNOWN INDICATION
  7. OMEPRAZOLE [Concomitant]
     Indication: GASTROOESOPHAGEAL REFLUX DISEASE
  8. NEURONTIN [Concomitant]
     Indication: FIBROMYALGIA
     Dosage: 900 DAILY DOSE
  9. REGLAN [Concomitant]
     Indication: NAUSEA
  10. ULTRAM [Concomitant]
     Indication: PAIN
     Dosage: 300MG DAILY
  11. POTASSIUM CHLORIDE [Concomitant]
     Indication: BLOOD POTASSIUM DECREASED
  12. CELEBREX [Concomitant]
     Indication: ARTHRITIS
     Dosage: 400MG DAILY
  13. GLUCOPHAGE [Concomitant]
     Indication: TYPE 2 DIABETES MELLITUS
     Dosage: 2000MG DAILY
  14. LIPITOR [Concomitant]
     Indication: BLOOD CHOLESTEROL INCREASED
  15. KLONOPIN [Concomitant]
     Indication: ANXIOLYTIC THERAPY
  16. KLONOPIN [Concomitant]
     Indication: DEPRESSION
  17. PROZAC [Concomitant]
     Indication: DEPRESSION
  18. PROZAC [Concomitant]
     Indication: NERVOUSNESS
  19. FLEXERIL [Concomitant]
     Indication: MUSCLE RELAXANT THERAPY
     Dosage: 30MG DAILY
  20. PURINETHOL [Concomitant]
     Indication: CROHN'S DISEASE
     Dosage: 1.5 TABS DAILY
  21. TOPROL-XL [Concomitant]
     Indication: HYPERTENSION
     Dosage: 100MG DAILY
  22. NITROGLYCERIN [Concomitant]
     Indication: ANGINA PECTORIS
     Route: 060
  23. GENERIC FOR METROPOLOL [Concomitant]
     Indication: HYPERTENSION
     Dosage: 20MG DAILY
  24. GLIPIZIDE [Concomitant]
     Indication: TYPE 2 DIABETES MELLITUS
  25. ZINC [Concomitant]
     Indication: DRUG USE FOR UNKNOWN INDICATION
  26. NIACIN [Concomitant]
     Indication: DRUG USE FOR UNKNOWN INDICATION
  27. MAGNESIUM SULFATE [Concomitant]
     Indication: DRUG USE FOR UNKNOWN INDICATION
  28. POTASSIUM SUPPLEMENTS [Concomitant]
     Indication: DRUG USE FOR UNKNOWN INDICATION

REACTIONS (4)
  - BLISTER [None]
  - COUGH [None]
  - SCAB [None]
  - SKIN ULCER [None]
